FAERS Safety Report 8003731-X (Version None)
Quarter: 2011Q4

REPORT INFORMATION
  Report Type: 
  Country: None (occurrence: None)
  Receive Date: 20111222
  Receipt Date: 20111108
  Transmission Date: 20120403
  Serious: Yes (Death)
  Sender: FDA-Public Use
  Company Number: US-ASTRAZENECA-2011SE68026

PATIENT
  Age: 0 Week

DRUGS (2)
  1. SEROQUEL XR [Suspect]
     Indication: BIPOLAR DISORDER
     Route: 064
  2. SEROQUEL XR [Suspect]
     Route: 064
     Dates: start: 20100101

REACTIONS (1)
  - CYTOGENETIC ABNORMALITY [None]
